FAERS Safety Report 25613445 (Version 1)
Quarter: 2025Q3

REPORT INFORMATION
  Report Type: Spontaneous
  Country: US (occurrence: None)
  Receive Date: 20250728
  Receipt Date: 20250728
  Transmission Date: 20251020
  Serious: Yes (Hospitalization)
  Sender: FDA-CTU
  Company Number: None

PATIENT
  Age: 71 Year
  Sex: Male

DRUGS (1)
  1. POMALYST [Suspect]
     Active Substance: POMALIDOMIDE
     Indication: Plasma cell myeloma
     Route: 048

REACTIONS (5)
  - Anaemia [None]
  - Chronic obstructive pulmonary disease [None]
  - Respiratory failure [None]
  - Septic shock [None]
  - Therapy interrupted [None]

NARRATIVE: CASE EVENT DATE: 20250720
